FAERS Safety Report 14625743 (Version 1)
Quarter: 2018Q1

REPORT INFORMATION
  Report Type: Spontaneous
  Country: DK (occurrence: DK)
  Receive Date: 20180312
  Receipt Date: 20180312
  Transmission Date: 20180509
  Serious: Yes (Other)
  Sender: FDA-Public Use
  Company Number: DK-GLAXOSMITHKLINE-DK2018035564

PATIENT
  Age: 69 Year
  Sex: Male
  Weight: 68 kg

DRUGS (7)
  1. CODEINE PHOSPHATE [Concomitant]
     Active Substance: CODEINE PHOSPHATE
     Dosage: 75 MG, QD
     Route: 048
     Dates: start: 20120101
  2. ANORO ELLIPTA [Suspect]
     Active Substance: UMECLIDINIUM BROMIDE\VILANTEROL TRIFENATATE
     Indication: CHRONIC OBSTRUCTIVE PULMONARY DISEASE
     Dosage: UNK
     Route: 055
  3. MOMETASONE FUROATE. [Concomitant]
     Active Substance: MOMETASONE FUROATE
     Indication: NASAL POLYPS
     Dosage: STYRKE: 50 ?G/DOSIS. DOSIS: 2 PUST 2 GANGE DAGLIG I HVERT N?SEBOR
     Route: 045
     Dates: start: 20170101
  4. ACTRAPID [Concomitant]
     Active Substance: INSULIN HUMAN
     Indication: DIABETES MELLITUS
     Dosage: STYRKE: 100 IE/ML
     Route: 058
     Dates: start: 19750101
  5. PARACETAMOL [Concomitant]
     Active Substance: ACETAMINOPHEN
     Indication: ARTHRALGIA
     Dosage: 4000 MG, UNK
     Route: 048
     Dates: start: 20120101
  6. VENLAFAXIN HEXAL [Concomitant]
     Active Substance: VENLAFAXINE HYDROCHLORIDE
     Indication: DEPRESSION
     Dosage: STYRKE: 37,5 MG.
     Route: 048
     Dates: start: 20130101
  7. INSULATARD NPH HUMAN [Concomitant]
     Active Substance: INSULIN HUMAN
     Indication: DIABETES MELLITUS
     Dosage: STYRKE: 100 IE/ML
     Route: 058
     Dates: start: 19750101

REACTIONS (5)
  - Wound haemorrhage [Not Recovered/Not Resolved]
  - Urinary incontinence [Not Recovered/Not Resolved]
  - Respiratory distress [Not Recovered/Not Resolved]
  - Nightmare [Not Recovered/Not Resolved]
  - Pruritus generalised [Not Recovered/Not Resolved]

NARRATIVE: CASE EVENT DATE: 20170701
